FAERS Safety Report 6758796-X (Version None)
Quarter: 2010Q2

REPORT INFORMATION
  Report Type: 
  Country: None (occurrence: None)
  Receive Date: 20100607
  Receipt Date: 20100526
  Transmission Date: 20101027
  Serious: Yes (Hospitalization)
  Sender: FDA-Public Use
  Company Number: US-AMGEN-KDL414776

PATIENT
  Sex: Female

DRUGS (1)
  1. ENBREL [Suspect]
     Indication: RHEUMATOID ARTHRITIS
     Route: 058
     Dates: start: 20090801

REACTIONS (6)
  - BACK PAIN [None]
  - DIZZINESS [None]
  - FALL [None]
  - JOINT INJURY [None]
  - PAIN [None]
  - TRANSIENT ISCHAEMIC ATTACK [None]
